FAERS Safety Report 13648572 (Version 2)
Quarter: 2017Q3

REPORT INFORMATION
  Report Type: Spontaneous
  Country: US (occurrence: US)
  Receive Date: 20170613
  Receipt Date: 20170719
  Transmission Date: 20171127
  Serious: Yes (Death, Hospitalization)
  Sender: FDA-Public Use
  Company Number: US-PFIZER INC-2017255259

PATIENT
  Age: 69 Year
  Sex: Male

DRUGS (2)
  1. VFEND [Suspect]
     Active Substance: VORICONAZOLE
     Dosage: 200 UG, 2X/DAY
  2. VFEND [Suspect]
     Active Substance: VORICONAZOLE
     Dosage: 50 UG, 2X/DAY
     Dates: start: 201703

REACTIONS (1)
  - Cerebrovascular accident [Fatal]
